FAERS Safety Report 11682563 (Version 1)
Quarter: 2015Q4

REPORT INFORMATION
  Report Type: Spontaneous
  Country: US (occurrence: None)
  Receive Date: 20151028
  Receipt Date: 20151028
  Transmission Date: 20160304
  Serious: Yes (Hospitalization)
  Sender: FDA-Public Use
  Company Number: None

PATIENT
  Age: 67 Year
  Sex: Male
  Weight: 78.85 kg

DRUGS (3)
  1. BENDAMUSTINE HYDROCHLORIDE [Suspect]
     Active Substance: BENDAMUSTINE HYDROCHLORIDE
     Dates: end: 20151008
  2. RITUXIMAB (MOAB C2B8 ANTI CD20, CHIMERIC) [Concomitant]
     Active Substance: RITUXIMAB
     Dates: end: 20151007
  3. VELCADE [Suspect]
     Active Substance: BORTEZOMIB
     Dates: end: 20151014

REACTIONS (5)
  - Sputum discoloured [None]
  - Cough [None]
  - Laboratory test abnormal [None]
  - Febrile neutropenia [None]
  - Myalgia [None]

NARRATIVE: CASE EVENT DATE: 20151024
